FAERS Safety Report 9631914 (Version 1)
Quarter: 2013Q4

REPORT INFORMATION
  Report Type: Spontaneous
  Country: US (occurrence: None)
  Receive Date: 20131017
  Receipt Date: 20131017
  Transmission Date: 20140711
  Serious: Yes (Other)
  Sender: FDA-Public Use
  Company Number: None

PATIENT
  Age: 29 Year
  Sex: Female
  Weight: 63.5 kg

DRUGS (1)
  1. MIRVASO 0.33% GALDERMA [Suspect]
     Indication: ROSACEA
     Dosage: PEA SIZE AMOUNT ONCE DAILY APPLIED TO A SURFACE, USUALLY THE SKIN
     Dates: start: 20131002, end: 20131012

REACTIONS (3)
  - Skin irritation [None]
  - Rash [None]
  - Burning sensation [None]
